FAERS Safety Report 6763927-1 (Version None)
Quarter: 2010Q2

REPORT INFORMATION
  Report Type: 
  Country: None (occurrence: None)
  Receive Date: 20100608
  Receipt Date: 20100527
  Transmission Date: 20101027
  Serious: Yes (Hospitalization, Other)
  Sender: FDA-Public Use
  Company Number: 231394J10USA

PATIENT
  Age: 47 Year
  Sex: Female
  Weight: 104 kg

DRUGS (14)
  1. REBIF [Suspect]
     Indication: MULTIPLE SCLEROSIS
     Dosage: SUBCUTANEOUS 44MCG, 3 IN 1 WK, SUBCUTANEOUS,  22 MCG, 3 IN 1 WK,  SUBCUTANEOUS
     Route: 058
     Dates: start: 20090925, end: 20090101
  2. REBIF [Suspect]
     Indication: MULTIPLE SCLEROSIS
     Dosage: SUBCUTANEOUS 44MCG, 3 IN 1 WK, SUBCUTANEOUS,  22 MCG, 3 IN 1 WK,  SUBCUTANEOUS
     Route: 058
     Dates: start: 20091101, end: 20091101
  3. REBIF [Suspect]
     Indication: MULTIPLE SCLEROSIS
     Dosage: SUBCUTANEOUS 44MCG, 3 IN 1 WK, SUBCUTANEOUS,  22 MCG, 3 IN 1 WK,  SUBCUTANEOUS
     Route: 058
     Dates: start: 20100122, end: 20100203
  4. REBIF [Suspect]
     Indication: MULTIPLE SCLEROSIS
     Dosage: SUBCUTANEOUS 44MCG, 3 IN 1 WK, SUBCUTANEOUS,  22 MCG, 3 IN 1 WK,  SUBCUTANEOUS
     Route: 058
     Dates: start: 20100212, end: 20100216
  5. XANAX [Concomitant]
  6. DIOVAN [Concomitant]
  7. LASIX [Concomitant]
  8. ASPIRIN [Concomitant]
  9. PLAVIX [Concomitant]
  10. CEFTIN [Concomitant]
  11. MEDROL [Concomitant]
  12. SPIRIVA [Concomitant]
  13. VICODIN [Concomitant]
  14. KLOR-CON [Concomitant]

REACTIONS (13)
  - ABDOMINAL DISTENSION [None]
  - AGITATION [None]
  - ARTHRALGIA [None]
  - CHEST DISCOMFORT [None]
  - CORONARY ARTERY OCCLUSION [None]
  - DYSPNOEA [None]
  - INFLUENZA LIKE ILLNESS [None]
  - JOINT SWELLING [None]
  - LUNG NEOPLASM [None]
  - RAYNAUD'S PHENOMENON [None]
  - SCLERODERMA [None]
  - SWELLING FACE [None]
  - VIOLENCE-RELATED SYMPTOM [None]
